FAERS Safety Report 24857089 (Version 2)
Quarter: 2025Q1

REPORT INFORMATION
  Report Type: Spontaneous
  Country: IT (occurrence: IT)
  Receive Date: 20250117
  Receipt Date: 20250122
  Transmission Date: 20250409
  Serious: Yes (Other)
  Sender: BIOVITRUM
  Company Number: None

PATIENT
  Age: 32 Year
  Sex: Female
  Weight: 51 kg

DRUGS (1)
  1. KINERET [Suspect]
     Active Substance: ANAKINRA
     Indication: Pericarditis
     Route: 058
     Dates: start: 2024

REACTIONS (6)
  - Migraine [Recovering/Resolving]
  - Vertigo [Not Recovered/Not Resolved]
  - Sleep disorder [Recovered/Resolved]
  - Head discomfort [Not Recovered/Not Resolved]
  - Abnormal dreams [Recovered/Resolved]
  - Off label use [Recovering/Resolving]

NARRATIVE: CASE EVENT DATE: 20241201
